FAERS Safety Report 9758896 (Version 1)
Quarter: 2013Q4

REPORT INFORMATION
  Report Type: Spontaneous
  Country: US (occurrence: None)
  Receive Date: 20131216
  Receipt Date: 20131216
  Transmission Date: 20140711
  Serious: No
  Sender: FDA-Public Use
  Company Number: 163-POMAL-13041887(0)

PATIENT
  Age: 78 Year
  Sex: Female
  Weight: 55 kg

DRUGS (10)
  1. POMALYST [Suspect]
     Dosage: 4 MG, 21 IN 21 D, PO
  2. ACYCLOVIR (ACICLOVIR) (UNKNOWN) [Concomitant]
  3. ELAVIL (AMITRIPTYLINE HYDROCHLORIDE) (UNKNOWN) [Concomitant]
  4. FOLIC ACID (FOLIC ACID) (UNKNOWN) [Concomitant]
  5. LEXAPRO (ESCITALOPRAM OXALATE) (UNKNOWN) [Concomitant]
  6. HYDROMORPHONE (HYDROMORPHONE) (UNKNOWN) (HYDROMORPHONE) [Concomitant]
  7. CALCIUM +D (OS-CAL) (UNKNOWN) [Concomitant]
  8. MVI (MVI) (UNKNOWN) [Concomitant]
  9. FENTANYL (FENTANYL) (UNKNOWN) (FENTANYL) [Concomitant]
  10. DEXAMETHASONE (DEXAMETHASONE) (UNKNOWN) [Concomitant]

REACTIONS (1)
  - Fatigue [None]
